FAERS Safety Report 16834391 (Version 1)
Quarter: 2019Q3

REPORT INFORMATION
  Report Type: Spontaneous
  Country: FR (occurrence: FR)
  Receive Date: 20190920
  Receipt Date: 20190920
  Transmission Date: 20191005
  Serious: Yes (Death, Hospitalization)
  Sender: FDA-Public Use
  Company Number: FR-BAYER-2019-171048

PATIENT
  Age: 70 Year
  Sex: Male

DRUGS (2)
  1. STIVARGA [Suspect]
     Active Substance: REGORAFENIB
     Indication: COLORECTAL CANCER METASTATIC
     Dosage: 120 MG DAILY (3 WEEKS ON, 1 WEEK OFF)
     Dates: start: 201812
  2. STIVARGA [Suspect]
     Active Substance: REGORAFENIB
     Indication: COLORECTAL CANCER METASTATIC
     Dosage: 80 MG DAILY

REACTIONS (8)
  - Oedema peripheral [None]
  - Death [Fatal]
  - Diarrhoea [None]
  - Anorectal disorder [None]
  - Proctalgia [None]
  - General physical health deterioration [None]
  - Drug intolerance [None]
  - Jaundice [None]

NARRATIVE: CASE EVENT DATE: 201904
